FAERS Safety Report 4641026-2 (Version None)
Quarter: 2005Q2

REPORT INFORMATION
  Report Type: 
  Country: None (occurrence: None)
  Receive Date: 20050419
  Receipt Date: 20050419
  Transmission Date: 20051028
  Serious: No
  Sender: FDA-Public Use
  Company Number: None

PATIENT
  Age: 49 Year
  Sex: Male
  Weight: 70.7611 kg

DRUGS (3)
  1. OXYCONTIN [Suspect]
     Indication: POSTOPERATIVE ANALGESIA
     Dosage: ONE BID PO
     Route: 048
     Dates: start: 20050201
  2. OXYCONTIN [Suspect]
     Indication: SPINAL FUSION SURGERY
     Dosage: ONE BID PO
     Route: 048
     Dates: start: 20050201
  3. OXYCONTIN [Suspect]
     Indication: SPINAL LAMINECTOMY
     Dosage: ONE BID PO
     Route: 048
     Dates: start: 20050201

REACTIONS (1)
  - RASH GENERALISED [None]
